FAERS Safety Report 10280085 (Version 1)
Quarter: 2014Q3

REPORT INFORMATION
  Report Type: Spontaneous
  Country: US (occurrence: None)
  Receive Date: 20140701
  Receipt Date: 20140701
  Transmission Date: 20150326
  Serious: Yes (Hospitalization)
  Sender: FDA-Public Use
  Company Number: None

PATIENT
  Age: 40 Year
  Sex: Female
  Weight: 53.98 kg

DRUGS (1)
  1. MIRENA [Suspect]
     Active Substance: LEVONORGESTREL
     Dosage: EVERY FIVE YEARS
     Dates: start: 20140607, end: 20140630

REACTIONS (8)
  - Presyncope [None]
  - Hypoaesthesia [None]
  - Dizziness [None]
  - Nausea [None]
  - Diarrhoea [None]
  - Palpitations [None]
  - Headache [None]
  - Fatigue [None]

NARRATIVE: CASE EVENT DATE: 20140607
